FAERS Safety Report 21274401 (Version 1)
Quarter: 2022Q3

REPORT INFORMATION
  Report Type: Spontaneous
  Country: FR (occurrence: FR)
  Receive Date: 20220831
  Receipt Date: 20220831
  Transmission Date: 20221027
  Serious: Yes (Hospitalization)
  Sender: FDA-Public Use
  Company Number: None

PATIENT

DRUGS (16)
  1. REMODULIN [Interacting]
     Active Substance: TREPROSTINIL
     Indication: Pulmonary arterial hypertension
     Dosage: UNK, CONTINUING
     Route: 058
     Dates: end: 20220709
  2. REMODULIN [Interacting]
     Active Substance: TREPROSTINIL
     Dosage: UNK, CONTINUING
     Route: 058
     Dates: start: 2022
  3. ADEMPAS [Interacting]
     Active Substance: RIOCIGUAT
     Indication: Pulmonary arterial hypertension
     Dosage: 6 MG, QD
     Route: 048
     Dates: end: 20220709
  4. ADEMPAS [Interacting]
     Active Substance: RIOCIGUAT
     Dosage: UNK
     Route: 048
     Dates: start: 2022
  5. XARELTO [Interacting]
     Active Substance: RIVAROXABAN
     Indication: Cardiovascular event prophylaxis
     Dosage: 20 MG, QD
     Route: 048
     Dates: start: 2018, end: 20220709
  6. XARELTO [Interacting]
     Active Substance: RIVAROXABAN
     Dosage: UNK
     Route: 048
     Dates: start: 2022
  7. DULOXETINE [Interacting]
     Active Substance: DULOXETINE
     Indication: Depression
     Dosage: 60 MG, QD
     Route: 048
     Dates: end: 20220709
  8. DULOXETINE [Interacting]
     Active Substance: DULOXETINE
     Dosage: UNK
     Route: 048
     Dates: start: 2022
  9. AMBRISENTAN [Concomitant]
     Active Substance: AMBRISENTAN
     Indication: Product used for unknown indication
     Dosage: 10 MG, QD
     Route: 048
     Dates: end: 20220709
  10. TRESIBA [Concomitant]
     Active Substance: INSULIN DEGLUDEC
     Indication: Product used for unknown indication
     Dosage: 24 [IU], QD
     Route: 058
  11. ALPRAZOLAM [Concomitant]
     Active Substance: ALPRAZOLAM
     Indication: Product used for unknown indication
     Dosage: 0.25 MG, QD
     Route: 048
  12. NOVORAPID [Concomitant]
     Active Substance: INSULIN ASPART
     Indication: Product used for unknown indication
     Dosage: UNK
     Route: 048
  13. FUROSEMIDE [Concomitant]
     Active Substance: FUROSEMIDE
     Indication: Product used for unknown indication
     Dosage: 40 MG, QD
     Route: 048
     Dates: end: 20220709
  14. RAMIPRIL [Concomitant]
     Active Substance: RAMIPRIL
     Indication: Product used for unknown indication
     Dosage: 1.25 MG, QD
     Route: 048
     Dates: end: 20220709
  15. POTASSIUM CHLORIDE [Concomitant]
     Active Substance: POTASSIUM CHLORIDE
     Indication: Product used for unknown indication
     Dosage: 3600 MG, QD
     Route: 048
  16. SPIRONOLACTONE [Concomitant]
     Active Substance: SPIRONOLACTONE
     Indication: Product used for unknown indication
     Dosage: 25 MG, QD
     Route: 048
     Dates: end: 20220709

REACTIONS (2)
  - Drug interaction [Recovered/Resolved]
  - Haemoptysis [Recovered/Resolved]

NARRATIVE: CASE EVENT DATE: 20220321
